FAERS Safety Report 15351024 (Version 1)
Quarter: 2018Q3

REPORT INFORMATION
  Report Type: Report from Study
  Country: US (occurrence: US)
  Receive Date: 20180905
  Receipt Date: 20180905
  Transmission Date: 20181010
  Serious: Yes (Other)
  Sender: FDA-Public Use
  Company Number: US-TESARO, INC-US-2018TSO04311

PATIENT
  Sex: Female

DRUGS (1)
  1. ZEJULA [Suspect]
     Active Substance: NIRAPARIB
     Indication: OVARIAN CANCER
     Dosage: 100 MG, BID
     Route: 048
     Dates: start: 20180303

REACTIONS (6)
  - Blood pressure abnormal [Recovering/Resolving]
  - Inappropriate schedule of drug administration [Unknown]
  - Atrial fibrillation [Unknown]
  - Decreased appetite [Not Recovered/Not Resolved]
  - Laboratory test abnormal [Not Recovered/Not Resolved]
  - Constipation [Recovering/Resolving]
